FAERS Safety Report 6534742-9 (Version None)
Quarter: 2010Q1

REPORT INFORMATION
  Report Type: 
  Country: None (occurrence: None)
  Receive Date: 20100112
  Receipt Date: 20100107
  Transmission Date: 20100710
  Serious: Yes (Hospitalization)
  Sender: FDA-Public Use
  Company Number: US-ROCHE-678392

PATIENT
  Sex: Male
  Weight: 66.7 kg

DRUGS (13)
  1. BEVACIZUMAB [Suspect]
     Indication: NON-SMALL CELL LUNG CANCER STAGE IV
     Dosage: LAST DOSE PRIOR TO SAE: 30 JULY 2009.
     Route: 042
     Dates: start: 20090402
  2. PEMETREXED [Suspect]
     Indication: NON-SMALL CELL LUNG CANCER STAGE IV
     Dosage: LAST DOSE PRIOR TO SAE: 30 JULY 2009.
     Route: 042
     Dates: start: 20090402
  3. CARBOPLATIN [Suspect]
     Indication: NON-SMALL CELL LUNG CANCER STAGE IV
     Dosage: DOSE: 6 AUC. LAST DOSE PRIOR TO SAE: 18 JUNE 2009.
     Route: 042
     Dates: start: 20090402, end: 20090618
  4. SIMVASTATIN [Concomitant]
  5. ADVAIR DISKUS 100/50 [Concomitant]
  6. ALBUTEROL [Concomitant]
  7. AMBIEN [Concomitant]
     Dates: start: 20090318
  8. LORTAB [Concomitant]
     Dates: start: 20090325
  9. VITAMIN B-12 [Concomitant]
     Dates: start: 20090528
  10. FOLIC ACID [Concomitant]
     Dates: start: 20090323
  11. ZOFRAN [Concomitant]
     Dates: start: 20090513
  12. MUCINEX [Concomitant]
     Dates: start: 20090513
  13. XANAX [Concomitant]
     Dates: start: 20090513

REACTIONS (1)
  - STARVATION [None]
